FAERS Safety Report 7510084-X (Version None)
Quarter: 2011Q2

REPORT INFORMATION
  Report Type: 
  Country: None (occurrence: None)
  Receive Date: 20110527
  Receipt Date: 20110519
  Transmission Date: 20111010
  Serious: Yes (Hospitalization)
  Sender: FDA-Public Use
  Company Number: FR-PFIZER INC-2011107974

PATIENT
  Age: 59 Year
  Sex: Female

DRUGS (1)
  1. SOLU-MEDROL [Suspect]
     Dosage: 60 MG, 1X/DAY
     Route: 042
     Dates: start: 20110411, end: 20110412

REACTIONS (2)
  - PAIN [None]
  - BACK PAIN [None]
